FAERS Safety Report 20701677 (Version 1)
Quarter: 2022Q2

REPORT INFORMATION
  Report Type: Other
  Country: CN (occurrence: None)
  Receive Date: 20220412
  Receipt Date: 20220412
  Transmission Date: 20220720
  Serious: Yes (Other)
  Sender: FDA-Public Use
  Company Number: CN-Invatech-000236

PATIENT
  Sex: Female

DRUGS (4)
  1. VALPROIC ACID [Suspect]
     Active Substance: VALPROIC ACID
     Indication: Petit mal epilepsy
     Dosage: 31.25 MG/KG/D
  2. LAMOTRIGINE [Suspect]
     Active Substance: LAMOTRIGINE
     Indication: Petit mal epilepsy
     Dosage: 6.25 MG/KG/D
  3. LEVETIRACETAM [Suspect]
     Active Substance: LEVETIRACETAM
     Indication: Petit mal epilepsy
     Dosage: 37.50 MG/KG/D
  4. PERAMPANEL [Suspect]
     Active Substance: PERAMPANEL
     Indication: Petit mal epilepsy
     Dosage: 2 MG/D

REACTIONS (3)
  - Petit mal epilepsy [Not Recovered/Not Resolved]
  - Condition aggravated [Not Recovered/Not Resolved]
  - Drug resistance [Unknown]
